FAERS Safety Report 5463346-4 (Version None)
Quarter: 2007Q3

REPORT INFORMATION
  Report Type: 
  Country: None (occurrence: None)
  Receive Date: 20070920
  Receipt Date: 20070914
  Transmission Date: 20080115
  Serious: Yes (Other)
  Sender: FDA-Public Use
  Company Number: US-ELI_LILLY_AND_COMPANY-US200709003456

PATIENT
  Sex: Female

DRUGS (2)
  1. GEMZAR [Suspect]
     Indication: OVARIAN CANCER RECURRENT
  2. CARBOPLATIN [Concomitant]
     Indication: OVARIAN CANCER RECURRENT

REACTIONS (2)
  - FATIGUE [None]
  - PERICARDIAL EFFUSION [None]
